FAERS Safety Report 6892646-6 (Version None)
Quarter: 2010Q3

REPORT INFORMATION
  Report Type: 
  Country: None (occurrence: None)
  Receive Date: 20100731
  Receipt Date: 20080808
  Transmission Date: 20110219
  Serious: Yes (Hospitalization, Other)
  Sender: FDA-Public Use
  Company Number: US-PFIZER INC-2006030623

PATIENT
  Sex: Male

DRUGS (8)
  1. NEURONTIN [Suspect]
     Indication: DEPRESSION
     Route: 048
     Dates: start: 20030123, end: 20030101
  2. NEURONTIN [Suspect]
     Indication: BIPOLAR DISORDER
  3. NEURONTIN [Suspect]
     Indication: MIGRAINE
  4. NEURONTIN [Suspect]
     Indication: ATTENTION DEFICIT/HYPERACTIVITY DISORDER
  5. NEURONTIN [Suspect]
     Indication: BACK PAIN
  6. SEROQUEL [Suspect]
     Dates: start: 20030123
  7. DEPAKOTE [Concomitant]
     Dates: start: 20030123
  8. EFFEXOR XR [Concomitant]
     Dates: start: 20030123

REACTIONS (6)
  - AGITATION [None]
  - DRUG INEFFECTIVE [None]
  - OVERDOSE [None]
  - PERSONALITY DISORDER [None]
  - SOMNOLENCE [None]
  - SUICIDE ATTEMPT [None]
